FAERS Safety Report 12917335 (Version 18)
Quarter: 2019Q2

REPORT INFORMATION
  Report Type: Report from Study
  Country: CO (occurrence: CO)
  Receive Date: 20161107
  Receipt Date: 20190627
  Transmission Date: 20190711
  Serious: Yes (Other)
  Sender: FDA-Public Use
  Company Number: CO-SA-2016SA199265

PATIENT
  Age: 30 Year
  Sex: Female
  Weight: 64 kg

DRUGS (1)
  1. ALEMTUZUMAB [Suspect]
     Active Substance: ALEMTUZUMAB
     Indication: MULTIPLE SCLEROSIS
     Dosage: 12 MG,QD
     Route: 041
     Dates: start: 20160318, end: 20160320

REACTIONS (8)
  - Haematocrit increased [Recovered/Resolved]
  - Eosinophilia [Recovered/Resolved]
  - Haematuria [Recovered/Resolved]
  - Leukocyturia [Recovered/Resolved]
  - Haemoglobin urine present [Recovered/Resolved]
  - Leukopenia [Recovered/Resolved]
  - Lymphopenia [Recovered/Resolved]
  - Red blood cells urine [Recovered/Resolved]

NARRATIVE: CASE EVENT DATE: 20161021
